FAERS Safety Report 13417977 (Version 1)
Quarter: 2017Q2

REPORT INFORMATION
  Report Type: Spontaneous
  Country: DE (occurrence: DE)
  Receive Date: 20170407
  Receipt Date: 20170407
  Transmission Date: 20170830
  Serious: Yes (Other)
  Sender: FDA-Public Use
  Company Number: DE-GILEAD-2017-0260318

PATIENT
  Age: 30 Year
  Sex: Female
  Weight: 95 kg

DRUGS (6)
  1. EPCLUSA [Suspect]
     Active Substance: SOFOSBUVIR\VELPATASVIR
     Indication: HEPATITIS C
     Dosage: 1 DF, UNK
     Route: 048
     Dates: start: 20170105
  2. ARIPIPRAZOL [Concomitant]
     Active Substance: ARIPIPRAZOLE
     Indication: PSYCHOTIC DISORDER
     Dosage: 10 MG, UNK
     Route: 048
     Dates: start: 2015
  3. QUETIAPIN [Concomitant]
     Active Substance: QUETIAPINE
     Indication: PSYCHOTIC DISORDER
     Dosage: 150 MG, UNK
     Route: 048
     Dates: start: 2008
  4. POLAMIDON [Concomitant]
     Active Substance: LEVOMETHADONE
     Indication: DRUG USE DISORDER
     Dosage: 38 MG, UNK
     Route: 048
     Dates: start: 2008
  5. QUETIAPIN [Concomitant]
     Active Substance: QUETIAPINE
     Dosage: 450 MG, UNK
     Route: 048
     Dates: start: 2008
  6. PROMETHAZINE [Concomitant]
     Active Substance: PROMETHAZINE\PROMETHAZINE HYDROCHLORIDE
     Indication: RESTLESSNESS
     Dosage: 25 MG, BID
     Route: 048
     Dates: start: 2015

REACTIONS (12)
  - Indifference [Recovering/Resolving]
  - Unevaluable event [Recovering/Resolving]
  - Apathy [Recovering/Resolving]
  - Dry skin [Recovering/Resolving]
  - Restlessness [Unknown]
  - Thought insertion [Recovering/Resolving]
  - Mental disorder [Recovering/Resolving]
  - Suspiciousness [Recovering/Resolving]
  - Decreased interest [Unknown]
  - Psychotic disorder [Recovered/Resolved]
  - Pain in extremity [Unknown]
  - Pruritus [Recovering/Resolving]

NARRATIVE: CASE EVENT DATE: 20170203
